FAERS Safety Report 10475451 (Version 1)
Quarter: 2014Q3

REPORT INFORMATION
  Report Type: Spontaneous
  Country: US (occurrence: None)
  Receive Date: 20140924
  Receipt Date: 20140924
  Transmission Date: 20150326
  Serious: Yes (Life-Threatening, Hospitalization, Disabling, Other)
  Sender: FDA-Public Use
  Company Number: None

PATIENT
  Age: 47 Year
  Sex: Female
  Weight: 76.66 kg

DRUGS (14)
  1. OXYCODONE [Suspect]
     Active Substance: OXYCODONE
     Indication: SYSTEMIC LUPUS ERYTHEMATOSUS
     Dosage: 120 MONTHLY 4 X^S MOUTH
     Route: 048
     Dates: start: 2007, end: 201409
  2. OXYCODONE [Suspect]
     Active Substance: OXYCODONE
     Dosage: 120 MONTHLY 4 X^S MOUTH
     Route: 048
     Dates: start: 2007, end: 201409
  3. PLAQUENIL [Concomitant]
     Active Substance: HYDROXYCHLOROQUINE SULFATE
  4. ELAVIL [Concomitant]
     Active Substance: AMITRIPTYLINE HYDROCHLORIDE
  5. TRILEPTAL [Concomitant]
     Active Substance: OXCARBAZEPINE
  6. PANTOPRAZOLE [Concomitant]
     Active Substance: PANTOPRAZOLE SODIUM
  7. RISPERIDONE. [Concomitant]
     Active Substance: RISPERIDONE
  8. WELLBUTRIN [Concomitant]
     Active Substance: BUPROPION HYDROCHLORIDE
  9. ZOLOFT [Concomitant]
     Active Substance: SERTRALINE HYDROCHLORIDE
  10. PERCOCET [Concomitant]
     Active Substance: ACETAMINOPHEN\OXYCODONE HYDROCHLORIDE
  11. OXYCODONE [Suspect]
     Active Substance: OXYCODONE
     Indication: BACK PAIN
     Dosage: 120 MONTHLY 4 X^S MOUTH
     Route: 048
     Dates: start: 2007, end: 201409
  12. OXYCODONE [Suspect]
     Active Substance: OXYCODONE
     Indication: FIBROMYALGIA
     Dosage: 120 MONTHLY 4 X^S MOUTH
     Route: 048
     Dates: start: 2007, end: 201409
  13. ASPIRIN. [Concomitant]
     Active Substance: ASPIRIN
  14. LOSARTAN [Concomitant]
     Active Substance: LOSARTAN

REACTIONS (6)
  - Disease recurrence [None]
  - Drug hypersensitivity [None]
  - Alopecia [None]
  - Aphagia [None]
  - Systemic lupus erythematosus [None]
  - Malaise [None]

NARRATIVE: CASE EVENT DATE: 201401
